FAERS Safety Report 23229778 (Version 1)
Quarter: 2023Q4

REPORT INFORMATION
  Report Type: Spontaneous
  Country: US (occurrence: None)
  Receive Date: 20231127
  Receipt Date: 20231127
  Transmission Date: 20240110
  Serious: No
  Sender: FDA-Public Use
  Company Number: US-ROCHE-3230562

PATIENT
  Sex: Female
  Weight: 52.21 kg

DRUGS (1)
  1. LUCENTIS [Suspect]
     Active Substance: RANIBIZUMAB
     Indication: Macular degeneration
     Dosage: EVERY 4 WEEKS IN HER LEFT EYE, THEN WENT TO EVERY 6 WEEKS AND THEN EVERY 8 WEEKS
     Route: 050
     Dates: start: 20221122

REACTIONS (1)
  - Eye disorder [Unknown]
